FAERS Safety Report 11906540 (Version 3)
Quarter: 2016Q1

REPORT INFORMATION
  Report Type: Spontaneous
  Country: CH (occurrence: CH)
  Receive Date: 20160111
  Receipt Date: 20160219
  Transmission Date: 20160526
  Serious: Yes (Other)
  Sender: FDA-Public Use
  Company Number: PHHY2016CH001747

PATIENT
  Sex: Female

DRUGS (2)
  1. TRILEPTAL [Suspect]
     Active Substance: OXCARBAZEPINE
     Dosage: 900 MG, QD
     Route: 048
     Dates: end: 20151218
  2. TRILEPTAL [Suspect]
     Active Substance: OXCARBAZEPINE
     Indication: EPILEPSY
     Dosage: 300 MG, BID
     Route: 048
     Dates: start: 20151125

REACTIONS (10)
  - Scintillating scotoma [Unknown]
  - Fatigue [Recovered/Resolved]
  - Pain [Unknown]
  - Vertigo [Recovered/Resolved]
  - Pruritus generalised [Recovered/Resolved]
  - Headache [Recovered/Resolved]
  - Vision blurred [Not Recovered/Not Resolved]
  - Blindness [Not Recovered/Not Resolved]
  - Rash generalised [Recovered/Resolved]
  - Erythema [Unknown]
